FAERS Safety Report 5675320-3 (Version None)
Quarter: 2008Q1

REPORT INFORMATION
  Report Type: 
  Country: None (occurrence: None)
  Receive Date: 20080320
  Receipt Date: 20080310
  Transmission Date: 20080703
  Serious: Yes (Death)
  Sender: FDA-Public Use
  Company Number: ES-WYE-G01221108

PATIENT
  Age: 41 Year
  Sex: Female

DRUGS (2)
  1. TIGECYCLINE [Suspect]
     Indication: PERITONITIS
     Dosage: UNKNOWN
  2. CEFTAZIDIME SODIUM [Concomitant]
     Dosage: UNKNOWN

REACTIONS (2)
  - DEATH [None]
  - VOMITING [None]
